FAERS Safety Report 15626702 (Version 1)
Quarter: 2018Q4

REPORT INFORMATION
  Report Type: Spontaneous
  Country: CN (occurrence: CN)
  Receive Date: 20181116
  Receipt Date: 20181116
  Transmission Date: 20190205
  Serious: Yes (Hospitalization)
  Sender: FDA-Public Use
  Company Number: CN-MYLANLABS-2018M1050554

PATIENT
  Age: 7 Decade
  Sex: Male

DRUGS (3)
  1. PEMETREXED. [Suspect]
     Active Substance: PEMETREXED
     Indication: NON-SMALL CELL LUNG CANCER
     Dosage: 500 MG/M2/DL
  2. IL-11 [Suspect]
     Active Substance: OPRELVEKIN
     Indication: THROMBOCYTOPENIA
     Dosage: 3 MG, QD
     Route: 058
  3. CARBOPLATIN. [Suspect]
     Active Substance: CARBOPLATIN
     Indication: NON-SMALL CELL LUNG CANCER
     Dosage: AUC=5MG/DL
     Route: 065

REACTIONS (2)
  - Thrombocytopenia [Recovering/Resolving]
  - Capillary leak syndrome [Recovered/Resolved]
